FAERS Safety Report 23849373 (Version 2)
Quarter: 2024Q2

REPORT INFORMATION
  Report Type: Report from Study
  Country: FR (occurrence: FR)
  Receive Date: 20240513
  Receipt Date: 20240528
  Transmission Date: 20240716
  Serious: Yes (Hospitalization, Other)
  Sender: FDA-Public Use
  Company Number: FR-BIOVITRUM-2024-FR-006713

PATIENT
  Age: 68 Year
  Sex: Male
  Weight: 65 kg

DRUGS (1)
  1. PACRITINIB [Suspect]
     Active Substance: PACRITINIB
     Indication: Myelofibrosis
     Dosage: BID
     Dates: start: 20240311

REACTIONS (1)
  - Sepsis [Recovered/Resolved]

NARRATIVE: CASE EVENT DATE: 20240515
